FAERS Safety Report 19515313 (Version 4)
Quarter: 2021Q3

REPORT INFORMATION
  Report Type: Report from Study
  Country: CN (occurrence: CN)
  Receive Date: 20210709
  Receipt Date: 20210721
  Transmission Date: 20211014
  Serious: Yes (Hospitalization)
  Sender: FDA-Public Use
  Company Number: CN-EISAI MEDICAL RESEARCH-EC-2021-095929

PATIENT
  Age: 52 Year
  Sex: Male
  Weight: 55.5 kg

DRUGS (8)
  1. UREA AND VITAMIN E [Concomitant]
     Dates: start: 20210515, end: 20210614
  2. FATS [Concomitant]
     Active Substance: LIPOSYN (R) INTRAVENOUS FAT EMULSION
     Route: 042
     Dates: start: 20210615, end: 20210617
  3. PEMBROLIZUMAB. [Suspect]
     Active Substance: PEMBROLIZUMAB
     Route: 041
     Dates: start: 20210625, end: 20210625
  4. AMINO ACIDS NOS [Concomitant]
     Active Substance: AMINO ACIDS, SOURCE UNSPECIFIED
     Route: 042
     Dates: start: 20210615, end: 20210617
  5. DEXAMETHASONE ACETATE [Concomitant]
     Active Substance: DEXAMETHASONE ACETATE
     Dates: start: 20210525
  6. PEMBROLIZUMAB. [Suspect]
     Active Substance: PEMBROLIZUMAB
     Indication: TRANSITIONAL CELL CARCINOMA
     Route: 041
     Dates: start: 20210330, end: 20210603
  7. LENVATINIB [Suspect]
     Active Substance: LENVATINIB
     Indication: TRANSITIONAL CELL CARCINOMA
     Route: 048
     Dates: start: 20210330, end: 20210616
  8. LENVATINIB [Suspect]
     Active Substance: LENVATINIB
     Route: 048
     Dates: start: 20210625, end: 20210629

REACTIONS (1)
  - Pneumonia [Recovered/Resolved]

NARRATIVE: CASE EVENT DATE: 20210626
